FAERS Safety Report 14174367 (Version 1)
Quarter: 2017Q4

REPORT INFORMATION
  Report Type: Spontaneous
  Country: JP (occurrence: JP)
  Receive Date: 20171109
  Receipt Date: 20171109
  Transmission Date: 20180321
  Serious: Yes (Hospitalization, Other)
  Sender: FDA-Public Use
  Company Number: JP-009507513-1711JPN000189J

PATIENT
  Sex: Female
  Weight: 50 kg

DRUGS (2)
  1. KEYTRUDA [Suspect]
     Active Substance: PEMBROLIZUMAB
     Dosage: 100 MG, QM
     Route: 041
     Dates: start: 201708, end: 20170923
  2. KEYTRUDA [Suspect]
     Active Substance: PEMBROLIZUMAB
     Indication: PANCREATIC CARCINOMA
     Dosage: 30 MG, EVERY 2 WEEKS
     Route: 041
     Dates: start: 201703, end: 2017

REACTIONS (5)
  - Decreased appetite [Recovering/Resolving]
  - Autoimmune disorder [Unknown]
  - Product use in unapproved indication [Unknown]
  - Adrenal insufficiency [Unknown]
  - Fatigue [Unknown]

NARRATIVE: CASE EVENT DATE: 2017
